FAERS Safety Report 5691500-5 (Version None)
Quarter: 2008Q1

REPORT INFORMATION
  Report Type: 
  Country: None (occurrence: None)
  Receive Date: 20080331
  Receipt Date: 20070411
  Transmission Date: 20080703
  Serious: Yes (Other)
  Sender: FDA-Public Use
  Company Number: 75659

PATIENT
  Age: 79 Year
  Sex: Male

DRUGS (8)
  1. MINOXIDIL [Suspect]
     Indication: HYPERTENSION
     Dosage: 15 MG/ORAL
     Route: 048
     Dates: end: 20070316
  2. ASPIRIN [Concomitant]
  3. BISOPROLOL FUMARATE [Concomitant]
  4. BUMETANIDE [Concomitant]
  5. CLOPIDOGREL [Concomitant]
  6. DILTIAZEM [Concomitant]
  7. GLICLAZIDE [Concomitant]
  8. GTN-S [Concomitant]

REACTIONS (1)
  - PERICARDIAL EFFUSION [None]
